FAERS Safety Report 8403788-8 (Version None)
Quarter: 2012Q2

REPORT INFORMATION
  Report Type: 
  Country: None (occurrence: None)
  Receive Date: 20120601
  Receipt Date: 20110829
  Transmission Date: 20120825
  Serious: No
  Sender: FDA-Public Use
  Company Number: US-NOVEN-11US003094

PATIENT
  Sex: Male

DRUGS (2)
  1. DAYTRANA [Suspect]
     Dosage: 1 PATCH DAILY
     Route: 062
     Dates: start: 20110601, end: 20110101
  2. DAYTRANA [Suspect]
     Indication: ATTENTION DEFICIT/HYPERACTIVITY DISORDER
     Dosage: 1 PATCH DAILY
     Route: 062
     Dates: start: 20110816, end: 20110801

REACTIONS (3)
  - APPLICATION SITE RASH [None]
  - OFF LABEL USE [None]
  - DRUG PRESCRIBING ERROR [None]
